FAERS Safety Report 8030033-8 (Version None)
Quarter: 2012Q1

REPORT INFORMATION
  Report Type: 
  Country: None (occurrence: None)
  Receive Date: 20120109
  Receipt Date: 20120103
  Transmission Date: 20120608
  Serious: Yes (Other)
  Sender: FDA-Public Use
  Company Number: IT-JNJFOC-20120100692

PATIENT
  Sex: Male

DRUGS (6)
  1. BENADON [Concomitant]
     Indication: VITAMIN B6 DEFICIENCY
     Dosage: STARTED 3 YERS AGO
     Route: 048
  2. TRUVADA [Suspect]
     Indication: HIV INFECTION
     Route: 048
     Dates: start: 20111207, end: 20111209
  3. COUMADIN [Concomitant]
     Indication: THROMBOSIS PROPHYLAXIS
     Dosage: STARTED 3 YEARS AGO
     Route: 048
  4. PREZISTA [Suspect]
     Indication: HIV INFECTION
     Route: 048
     Dates: start: 20111207, end: 20111209
  5. NORVIR [Suspect]
     Indication: HIV INFECTION
     Route: 048
     Dates: start: 20111207, end: 20111209
  6. FOLINA [Concomitant]
     Indication: ANAEMIA FOLATE DEFICIENCY
     Dosage: STARTED 3 YERS AGO
     Route: 048

REACTIONS (4)
  - INSOMNIA [None]
  - PYREXIA [None]
  - OCCIPITAL NEURALGIA [None]
  - ABDOMINAL PAIN [None]
